FAERS Safety Report 22166430 (Version 3)
Quarter: 2023Q2

REPORT INFORMATION
  Report Type: Spontaneous
  Country: GB (occurrence: None)
  Receive Date: 20230403
  Receipt Date: 20230629
  Transmission Date: 20230722
  Serious: Yes (Other)
  Sender: FDA-Public Use
  Company Number: 2022A190973

PATIENT
  Sex: Female

DRUGS (100)
  1. CANDESARTAN [Suspect]
     Active Substance: CANDESARTAN
     Indication: Product used for unknown indication
     Dosage: ONE TO BE TAKEN EACH DAY
     Dates: start: 20230222
  2. FELODIPINE [Suspect]
     Active Substance: FELODIPINE
     Indication: Blood pressure measurement
  3. FELODIPINE [Suspect]
     Active Substance: FELODIPINE
     Indication: Blood pressure measurement
     Dates: start: 20230106
  4. DAPAGLIFLOZIN [Suspect]
     Active Substance: DAPAGLIFLOZIN
     Route: 048
     Dates: start: 20230217
  5. DAPAGLIFLOZIN [Suspect]
     Active Substance: DAPAGLIFLOZIN
     Route: 048
  6. DAPAGLIFLOZIN [Suspect]
     Active Substance: DAPAGLIFLOZIN
     Indication: Ill-defined disorder
     Dates: start: 20220725
  7. ESOMEPRAZOLE [Suspect]
     Active Substance: ESOMEPRAZOLE
     Indication: Reflux laryngitis
     Dosage: AFTER EVERY MEAL
  8. FELODIPINE [Suspect]
     Active Substance: FELODIPINE
     Dates: start: 20230106
  9. ASTRAZENECA COVID-19 VACCINE [Suspect]
     Active Substance: AZD-1222
     Dosage: DOSE 2
     Dates: start: 20210517
  10. ASTRAZENECA COVID-19 VACCINE [Suspect]
     Active Substance: AZD-1222
     Indication: Adverse drug reaction
     Dosage: DOSE UNKNOWN
     Route: 030
  11. ASTRAZENECA COVID-19 VACCINE [Suspect]
     Active Substance: AZD-1222
     Dates: start: 20210312
  12. ASTRAZENECA COVID-19 VACCINE [Suspect]
     Active Substance: AZD-1222
     Indication: COVID-19 immunisation
     Dosage: DOSE 1
     Dates: start: 20210312, end: 20210312
  13. ASTRAZENECA COVID-19 VACCINE [Suspect]
     Active Substance: AZD-1222
     Dosage: DOSE 2
     Dates: start: 20210622, end: 20210622
  14. ASTRAZENECA COVID-19 VACCINE [Suspect]
     Active Substance: AZD-1222
     Dosage: DOSE 4
     Dates: start: 20221214
  15. NAPROXEN [Suspect]
     Active Substance: NAPROXEN
  16. CANDESARTAN [Suspect]
     Active Substance: CANDESARTAN
     Dates: start: 20220401, end: 20230316
  17. ASTRAZENECA COVID-19 VACCINE [Suspect]
     Active Substance: AZD-1222
     Indication: Adverse drug reaction
     Dosage: DOSE UNKNOWN
     Route: 030
     Dates: start: 20210601, end: 20220512
  18. ASTRAZENECA COVID-19 VACCINE [Suspect]
     Active Substance: AZD-1222
     Indication: Adverse drug reaction
     Dosage: DOSE UNKNOWN
     Route: 030
  19. APIXABAN [Suspect]
     Active Substance: APIXABAN
     Indication: Cerebrovascular accident prophylaxis
     Dosage: 10 MG (1 DAY); OLU: OFF LABEL DOSING FREQUENCY
     Dates: start: 20230207, end: 20230207
  20. APIXABAN [Suspect]
     Active Substance: APIXABAN
     Indication: Cerebrovascular accident prophylaxis
     Dosage: 5 MG, QD, OLU: OFF LABEL DOSING FREQUENCY
     Dates: start: 20230207, end: 20230207
  21. BISOPROLOL FUMARATE [Suspect]
     Active Substance: BISOPROLOL FUMARATE
     Indication: Cerebrovascular accident prophylaxis
     Dosage: 10 MG (1 DAY)10 MG, QD; OFF LABEL USE
  22. BISOPROLOL FUMARATE [Suspect]
     Active Substance: BISOPROLOL FUMARATE
     Indication: Cerebrovascular accident prophylaxis
     Dosage: 5 MG, QD; OFF LABEL USE
     Dates: start: 20180207, end: 20180207
  23. CANDESARTAN CILEXETIL [Suspect]
     Active Substance: CANDESARTAN CILEXETIL
  24. HYDROCHLOROTHIAZIDE [Suspect]
     Active Substance: HYDROCHLOROTHIAZIDE
     Indication: Product used for unknown indication
     Dosage: 2 MG, QD (MORNING)
     Route: 048
  25. CETIRIZINE HYDROCHLORIDE [Suspect]
     Active Substance: CETIRIZINE HYDROCHLORIDE
     Indication: Product used for unknown indication
     Dosage: 10 MILLIGRAM, QD (IN MORNING)
     Route: 048
  26. DIGOXIN [Suspect]
     Active Substance: DIGOXIN
     Indication: Cerebrovascular accident prophylaxis
  27. IMDUR [Suspect]
     Active Substance: ISOSORBIDE MONONITRATE
     Indication: Product used for unknown indication
  28. LEVOTHYROXINE SODIUM [Suspect]
     Active Substance: LEVOTHYROXINE SODIUM
     Indication: Product used for unknown indication
  29. LEVOTHYROXINE SODIUM [Suspect]
     Active Substance: LEVOTHYROXINE SODIUM
     Indication: Product used for unknown indication
     Dosage: 125 MICROGRAM, QD (MORNING)
  30. LEVOTHYROXINE SODIUM [Suspect]
     Active Substance: LEVOTHYROXINE SODIUM
     Indication: Product used for unknown indication
     Dosage: 50 MICROGRAM, ONCE A DAY (MORNING)
  31. LINAGLIPTIN [Suspect]
     Active Substance: LINAGLIPTIN
     Indication: Product used for unknown indication
     Dosage: 5 MG, ONCE DAILY (QD) (MORNING)
  32. LANSOPRAZOLE [Suspect]
     Active Substance: LANSOPRAZOLE
     Indication: Atrial fibrillation
     Dosage: 30 MG, ONCE DAILY (QD)
  33. LANSOPRAZOLE [Suspect]
     Active Substance: LANSOPRAZOLE
     Indication: Atrial fibrillation
     Dosage: 10 MILLIGRAM, QD; 5MG, QD
     Dates: start: 20180207, end: 20180207
  34. SIMVASTATIN [Suspect]
     Active Substance: SIMVASTATIN
     Indication: Product used for unknown indication
     Dosage: 40 MG, ONCE DAILY (QD) (NIGHT)
     Route: 048
  35. ISOSORBIDE MONONITRATE [Suspect]
     Active Substance: ISOSORBIDE MONONITRATE
     Indication: Product used for unknown indication
  36. ISOSORBIDE MONONITRATE [Suspect]
     Active Substance: ISOSORBIDE MONONITRATE
     Indication: Product used for unknown indication
     Dosage: 50 MILLIGRAM, ONCE A DAY
  37. ASTRAZENECA COVID-19 VACCINE [Suspect]
     Active Substance: AZD-1222
     Dates: start: 20210625
  38. ASTRAZENECA COVID-19 VACCINE [Suspect]
     Active Substance: AZD-1222
     Dosage: DOSE 3C
     Dates: start: 20211221, end: 20211221
  39. ASTRAZENECA COVID-19 VACCINE [Suspect]
     Active Substance: AZD-1222
  40. ASTRAZENECA COVID-19 VACCINE [Suspect]
     Active Substance: AZD-1222
  41. ASTRAZENECA COVID-19 VACCINE [Suspect]
     Active Substance: AZD-1222
  42. ASTRAZENECA COVID-19 VACCINE [Suspect]
     Active Substance: AZD-1222
  43. ASTRAZENECA COVID-19 VACCINE [Suspect]
     Active Substance: AZD-1222
  44. ISOSORBIDE DINITRATE [Suspect]
     Active Substance: ISOSORBIDE DINITRATE
  45. AMITRIPTYLINE HYDROCHLORIDE [Concomitant]
     Active Substance: AMITRIPTYLINE HYDROCHLORIDE
     Dates: start: 20221123
  46. BENDROFLUMETHIAZIDE [Concomitant]
     Active Substance: BENDROFLUMETHIAZIDE
     Dates: start: 20221123
  47. BISOPROLOL [Concomitant]
     Active Substance: BISOPROLOL
     Dates: start: 20230301
  48. FOSFOMYCIN [Concomitant]
     Active Substance: FOSFOMYCIN
     Dates: start: 20230227, end: 20230228
  49. ESTRIOL [Concomitant]
     Active Substance: ESTRIOL
     Dates: start: 20221123
  50. OMEPRAZOLE [Concomitant]
     Active Substance: OMEPRAZOLE
     Dates: start: 20221123
  51. SIMVASTATIN [Concomitant]
     Active Substance: SIMVASTATIN
     Dates: start: 20221123
  52. ASPIRIN [Concomitant]
     Active Substance: ASPIRIN
     Dates: start: 20230126
  53. BISOPROLOL [Concomitant]
     Active Substance: BISOPROLOL
     Dates: start: 20221205
  54. BUMETANIDE [Concomitant]
     Active Substance: BUMETANIDE
     Dates: start: 20220525, end: 20230217
  55. EDOXABAN [Concomitant]
     Active Substance: EDOXABAN
     Dates: start: 20221205
  56. FEXOFENADINE [Concomitant]
     Active Substance: FEXOFENADINE HYDROCHLORIDE
     Dates: start: 20230317
  57. LACTULOSE [Concomitant]
     Active Substance: LACTULOSE
     Dates: start: 20221104
  58. OMEPRAZOLE [Concomitant]
     Active Substance: OMEPRAZOLE
     Dates: start: 20221205
  59. ACETAMINOPHEN [Concomitant]
     Active Substance: ACETAMINOPHEN
     Dates: start: 20230111, end: 20230123
  60. RAMIPRIL [Concomitant]
     Active Substance: RAMIPRIL
     Dates: start: 20221205
  61. ROSUVASTATIN [Concomitant]
     Active Substance: ROSUVASTATIN
     Dates: start: 20210317, end: 20230217
  62. SENNA [Concomitant]
     Active Substance: SENNA LEAF\SENNOSIDES\SENNOSIDES A AND B
     Dates: start: 20211217
  63. SPIRONOLACTONE [Concomitant]
     Active Substance: SPIRONOLACTONE
     Dates: start: 20230105
  64. INSULIN GLARGINE [Concomitant]
     Active Substance: INSULIN GLARGINE
     Dates: start: 20211013, end: 20230106
  65. ALBUTEROL SULFATE [Concomitant]
     Active Substance: ALBUTEROL SULFATE
     Dates: start: 20220818
  66. ATORVASTATIN [Concomitant]
     Active Substance: ATORVASTATIN
  67. BENDROFLUMETHIAZIDE [Concomitant]
     Active Substance: BENDROFLUMETHIAZIDE
     Dates: start: 20221111
  68. CHLORAMPHENICOL [Concomitant]
     Active Substance: CHLORAMPHENICOL
     Dates: start: 20230318
  69. CITALOPRAM [Concomitant]
     Active Substance: CITALOPRAM HYDROBROMIDE
     Dates: start: 20230318
  70. DOCUSATE SODIUM [Concomitant]
     Active Substance: DOCUSATE SODIUM
  71. DOXAZOSIN [Concomitant]
     Active Substance: DOXAZOSIN MESYLATE
  72. FLUTICASONE PROPIONATE [Concomitant]
     Active Substance: FLUTICASONE PROPIONATE
  73. GABAPENTIN [Concomitant]
     Active Substance: GABAPENTIN
  74. GLICLAZIDE [Concomitant]
     Active Substance: GLICLAZIDE
  75. LACTULOSE [Concomitant]
     Active Substance: LACTULOSE
  76. POLYETHYLENE GLYCOL 3350\POTASSIUM CHLORIDE\SODIUM BICARBONATE\SODIUM [Concomitant]
     Active Substance: POLYETHYLENE GLYCOL 3350\POTASSIUM CHLORIDE\SODIUM BICARBONATE\SODIUM CHLORIDE
  77. METFORMIN [Concomitant]
     Active Substance: METFORMIN HYDROCHLORIDE
  78. MOVELAT [Concomitant]
  79. OLANZAPINE [Concomitant]
     Active Substance: OLANZAPINE
  80. PREDNISOLONE [Concomitant]
     Active Substance: PREDNISOLONE
  81. RAMIPRIL [Concomitant]
     Active Substance: RAMIPRIL
  82. SILDENAFIL [Concomitant]
     Active Substance: SILDENAFIL
  83. SIMVASTATIN [Concomitant]
     Active Substance: SIMVASTATIN
  84. SITAGLIPTIN [Concomitant]
     Active Substance: SITAGLIPTIN
  85. ACETAMINOPHEN\CODEINE PHOSPHATE [Concomitant]
     Active Substance: ACETAMINOPHEN\CODEINE PHOSPHATE
  86. PARAFFIN [Concomitant]
     Active Substance: PARAFFIN
  87. METFORMIN [Concomitant]
     Active Substance: METFORMIN HYDROCHLORIDE
  88. SITAGLIPTIN [Concomitant]
     Active Substance: SITAGLIPTIN
  89. GAVISCON [Concomitant]
     Active Substance: ALUMINUM HYDROXIDE\MAGNESIUM CARBONATE
  90. AMLODIPINE [Concomitant]
     Active Substance: AMLODIPINE BESYLATE
  91. DAPAGLIFLOZIN [Concomitant]
     Active Substance: DAPAGLIFLOZIN
     Dates: start: 20220512
  92. NITROGLYCERIN [Concomitant]
     Active Substance: NITROGLYCERIN
  93. LANSOPRAZOLE [Concomitant]
     Active Substance: LANSOPRAZOLE
  94. LEVOTHYROXINE SODIUM [Concomitant]
     Active Substance: LEVOTHYROXINE SODIUM
  95. LOSARTAN [Concomitant]
     Active Substance: LOSARTAN
  96. SOTALOL [Concomitant]
     Active Substance: SOTALOL
  97. SPIRONOLACTONE [Concomitant]
     Active Substance: SPIRONOLACTONE
  98. WARFARIN SODIUM [Concomitant]
     Active Substance: WARFARIN SODIUM
  99. COMIRNATY [Concomitant]
     Active Substance: TOZINAMERAN
  100. PFIZER SILDENAFIL [Concomitant]

REACTIONS (70)
  - Diarrhoea [Recovered/Resolved]
  - Malaise [Unknown]
  - Abdominal discomfort [Unknown]
  - Headache [Not Recovered/Not Resolved]
  - Nausea [Recovered/Resolved]
  - Hallucination [Recovered/Resolved]
  - Angioedema [Recovered/Resolved]
  - COVID-19 [Recovered/Resolved]
  - Dizziness [Recovered/Resolved]
  - Tinnitus [Not Recovered/Not Resolved]
  - Arthralgia [Recovered/Resolved]
  - Pain of skin [Recovered/Resolved]
  - Peripheral swelling [Recovered/Resolved]
  - Disturbance in attention [Recovered/Resolved]
  - Cognitive disorder [Recovered/Resolved]
  - Memory impairment [Recovering/Resolving]
  - Visual impairment [Recovering/Resolving]
  - Diplopia [Recovering/Resolving]
  - Vasculitis [Not Recovered/Not Resolved]
  - Carotid artery occlusion [Recovered/Resolved]
  - Transient ischaemic attack [Recovered/Resolved]
  - Pruritus genital [Recovered/Resolved]
  - Sleep terror [Recovered/Resolved]
  - Fatigue [Recovered/Resolved]
  - Vomiting [Recovered/Resolved]
  - Ventricular tachycardia [Not Recovered/Not Resolved]
  - Pericarditis [Not Recovered/Not Resolved]
  - Cardiospasm [Not Recovered/Not Resolved]
  - Dyspnoea [Unknown]
  - Atrial tachycardia [Not Recovered/Not Resolved]
  - Fatigue [Recovered/Resolved]
  - Anxiety [Not Recovered/Not Resolved]
  - Muscular weakness [Unknown]
  - Feeling abnormal [Unknown]
  - Insomnia [Unknown]
  - Heart rate increased [Unknown]
  - Muscle twitching [Unknown]
  - Abdominal pain upper [Not Recovered/Not Resolved]
  - Dehydration [Unknown]
  - Hyperhidrosis [Unknown]
  - Rash papular [Recovering/Resolving]
  - Lip swelling [Recovering/Resolving]
  - Pruritus [Recovering/Resolving]
  - Palmoplantar keratoderma [Not Recovered/Not Resolved]
  - Dry skin [Not Recovered/Not Resolved]
  - Myocardial infarction [Recovered/Resolved]
  - Chest pain [Unknown]
  - Palpitations [Unknown]
  - Tachycardia [Unknown]
  - Subarachnoid haemorrhage [Recovered/Resolved]
  - Pain [Recovered/Resolved]
  - Anosmia [Recovered/Resolved]
  - Eye pruritus [Recovered/Resolved]
  - Facial pain [Recovered/Resolved]
  - Fatigue [Recovered/Resolved]
  - Abdominal discomfort [Recovered/Resolved]
  - Back pain [Recovered/Resolved]
  - Blood glucose increased [Unknown]
  - Amnesia [Not Recovered/Not Resolved]
  - Blindness [Not Recovered/Not Resolved]
  - Immunisation [Recovered/Resolved]
  - Alopecia [Recovered/Resolved]
  - Pyrexia [Unknown]
  - Tension headache [Not Recovered/Not Resolved]
  - Migraine [Not Recovered/Not Resolved]
  - Adverse drug reaction [Not Recovered/Not Resolved]
  - Intentional product misuse [Unknown]
  - Off label use [Recovered/Resolved with Sequelae]
  - Drug abuse [Unknown]
  - Intentional product use issue [Unknown]

NARRATIVE: CASE EVENT DATE: 20180207
